FAERS Safety Report 5300303-2 (Version None)
Quarter: 2007Q2

REPORT INFORMATION
  Report Type: 
  Country: None (occurrence: None)
  Receive Date: 20070410
  Receipt Date: 20070330
  Transmission Date: 20071010
  Serious: Yes (Life-Threatening, Hospitalization)
  Sender: FDA-Public Use
  Company Number: GXKR2007GB03084

PATIENT
  Sex: Female
  Weight: 48 kg

DRUGS (5)
  1. ASPIRIN [Suspect]
     Indication: ATRIAL FIBRILLATION
     Dosage: 75 MG, QD, ORAL
     Route: 048
     Dates: end: 20061226
  2. BENDROFLUAZIDE (BENDROFLUMETHIAZIDE) [Concomitant]
  3. FELODIPINE [Concomitant]
  4. SALBUTAMOL (SALBUTAMOL) [Concomitant]
  5. SALMETEROL (SALMETEROL) [Concomitant]

REACTIONS (1)
  - DUODENAL ULCER HAEMORRHAGE [None]
